FAERS Safety Report 9509032 (Version 1)
Quarter: 2013Q3

REPORT INFORMATION
  Report Type: Spontaneous
  Country: US (occurrence: US)
  Receive Date: 20130909
  Receipt Date: 20130909
  Transmission Date: 20140515
  Serious: No
  Sender: FDA-Public Use
  Company Number: US-PFIZER INC-2013256286

PATIENT
  Age: 69 Year
  Sex: Male
  Weight: 83.9 kg

DRUGS (6)
  1. CHANTIX [Suspect]
     Indication: SMOKING CESSATION THERAPY
     Dosage: 0.5 MG, 1X/DAY
     Route: 048
  2. CHANTIX [Suspect]
     Dosage: 0.5 MG, 1X/DAY
     Route: 048
  3. CHANTIX [Suspect]
     Dosage: 1 MG, UNK
     Route: 048
  4. LOPERAMIDE [Concomitant]
     Indication: GASTROINTESTINAL DISORDER
     Dosage: 2 MG, UNK
  5. MOBIC [Concomitant]
     Indication: ARTHRITIS
     Dosage: 7.5 MG, UNK
  6. IRON [Concomitant]
     Dosage: UNK

REACTIONS (4)
  - Gastric disorder [Unknown]
  - Abdominal discomfort [Unknown]
  - Abdominal pain upper [Unknown]
  - Vomiting [Unknown]
